FAERS Safety Report 5452623-9 (Version None)
Quarter: 2007Q3

REPORT INFORMATION
  Report Type: 
  Country: None (occurrence: None)
  Receive Date: 20070914
  Receipt Date: 20070912
  Transmission Date: 20080115
  Serious: Yes (Other)
  Sender: FDA-Public Use
  Company Number: CH-BRISTOL-MYERS SQUIBB COMPANY-13905203

PATIENT

DRUGS (4)
  1. IFOSFAMIDE [Suspect]
     Indication: SARCOMA
     Dosage: DOSE 10 G/M2 AS CONTINUOUS INFUSION FOR OVER 5 DAYS.
  2. DOXORUBICIN HCL [Suspect]
     Indication: SARCOMA
     Route: 042
  3. MESNA [Suspect]
     Route: 042
  4. GRANULOCYTE CSF [Suspect]

REACTIONS (1)
  - HAEMATOTOXICITY [None]
